FAERS Safety Report 21283618 (Version 1)
Quarter: 2022Q3

REPORT INFORMATION
  Report Type: Spontaneous
  Country: US (occurrence: US)
  Receive Date: 20220901
  Receipt Date: 20220901
  Transmission Date: 20221027
  Serious: No
  Sender: FDA-Public Use
  Company Number: US-ABBVIE-22K-163-4306290-00

PATIENT
  Sex: Male
  Weight: 59.020 kg

DRUGS (2)
  1. DUOPA [Suspect]
     Active Substance: CARBIDOPA\LEVODOPA
     Indication: Parkinson^s disease
     Route: 050
  2. DUOPA [Suspect]
     Active Substance: CARBIDOPA\LEVODOPA

REACTIONS (4)
  - Prostatitis [Not Recovered/Not Resolved]
  - Nephropathy [Unknown]
  - Stoma site discharge [Not Recovered/Not Resolved]
  - Stoma complication [Not Recovered/Not Resolved]

NARRATIVE: CASE EVENT DATE: 20210101
